FAERS Safety Report 7628643-2 (Version None)
Quarter: 2011Q3

REPORT INFORMATION
  Report Type: 
  Country: None (occurrence: None)
  Receive Date: 20110711
  Receipt Date: 20110623
  Transmission Date: 20111222
  Serious: Yes (Disabling)
  Sender: FDA-Public Use
  Company Number: 2011027335

PATIENT
  Sex: Female
  Weight: 78.9259 kg

DRUGS (4)
  1. ORTHOTRICYCLIN (CILEST) [Concomitant]
  2. HIZENTRA [Suspect]
  3. HIZENTRA [Suspect]
     Indication: IMMUNODEFICIENCY
     Dosage: (6 G QD, 30 (CONT.) ML - 2-3 SITES OVER 45 MINS, 2 HOURS ONCE SUBCUTANEOUS), (SUBCUTANEOUS)
     Route: 058
  4. MINOCYCLINE HCL [Concomitant]

REACTIONS (9)
  - SKIN DISCOLOURATION [None]
  - NO THERAPEUTIC RESPONSE [None]
  - OEDEMA PERIPHERAL [None]
  - ARTHRALGIA [None]
  - PAIN IN EXTREMITY [None]
  - GAIT DISTURBANCE [None]
  - SLEEP DISORDER [None]
  - BLOOD PRESSURE INCREASED [None]
  - INFUSION SITE PAIN [None]
